FAERS Safety Report 8390112-2 (Version None)
Quarter: 2012Q2

REPORT INFORMATION
  Report Type: 
  Country: None (occurrence: None)
  Receive Date: 20120529
  Receipt Date: 20120522
  Transmission Date: 20120825
  Serious: Yes (Hospitalization, Other)
  Sender: FDA-Public Use
  Company Number: PHHO2012CA004281

PATIENT
  Sex: Female
  Weight: 27.2 kg

DRUGS (16)
  1. AMOXICILLIN AND CLAVULANATE POTASSIUM [Suspect]
     Indication: SINUSITIS
     Dosage: 200 / 500 MG Q8H
     Route: 042
     Dates: start: 20120308, end: 20120308
  2. ACETAMINOPHEN [Concomitant]
     Indication: PYREXIA
     Dosage: 324 MG, Q4H
     Dates: start: 20100302
  3. MORPHINE [Concomitant]
     Indication: PAIN
     Dosage: 6 MG, Q4H,PRN
     Dates: start: 20090115
  4. PREVACID [Concomitant]
     Indication: PROPHYLAXIS
     Dosage: 15 MG, DIE
     Dates: start: 20100915
  5. D-VI-SOL [Concomitant]
     Indication: VITAMIN SUPPLEMENTATION
     Dosage: EOMPTEGAETTE/DAY
     Dates: start: 20070715
  6. FOLIC ACID [Concomitant]
     Indication: VITAMIN SUPPLEMENTATION
     Dosage: 2.5 MG, QW
     Dates: start: 20071115
  7. MORPHINE SULFATE [Concomitant]
     Indication: JUVENILE ARTHRITIS
     Dosage: 50 MG, QD
     Dates: start: 20090115
  8. VITAMIN D [Concomitant]
     Indication: SUPPLEMENTATION THERAPY
     Dosage: LEPLJ/2
     Dates: start: 20070715
  9. ILARIS [Suspect]
     Indication: JUVENILE ARTHRITIS
     Dosage: 0.763 ML, UNK
     Route: 058
     Dates: start: 20100112
  10. METHOTREXATE [Concomitant]
     Indication: JUVENILE ARTHRITIS
     Dosage: 7.5 MG, QW
     Dates: start: 20101130
  11. TYLENOL [Concomitant]
     Indication: PYREXIA
     Dosage: 324 MG, Q4H
     Dates: start: 20120302
  12. ACETAMINOPHEN [Concomitant]
     Dosage: UNK
     Dates: start: 20120309
  13. PEDIAPRED [Concomitant]
     Dosage: 9 MG, QD
     Dates: start: 20070623
  14. TYLENOL [Concomitant]
     Dosage: UNK
     Dates: start: 20120309
  15. CALCIA [Concomitant]
     Indication: SUPPLEMENTATION THERAPY
     Dosage: LEPLJ/2
     Dates: start: 20070715
  16. NAPROXEN [Concomitant]
     Indication: ANTIINFLAMMATORY THERAPY
     Dosage: 200 MG, BID
     Route: 048
     Dates: start: 20120103

REACTIONS (3)
  - GASTROENTERITIS [None]
  - SINUSITIS [None]
  - IMPETIGO [None]
